FAERS Safety Report 10386006 (Version 1)
Quarter: 2014Q1

REPORT INFORMATION
  Report Type: Spontaneous
  Country: US (occurrence: None)
  Receive Date: 20140306
  Receipt Date: 20140306
  Transmission Date: 20141002
  Serious: Yes (Other)
  Sender: FDA-Public Use
  Company Number: 163-21880-13101513

PATIENT
  Age: 73 Year
  Sex: Male
  Weight: 88.9 kg

DRUGS (24)
  1. REVLIMID [Suspect]
     Indication: PLASMA CELL MYELOMA
     Dosage: 15MG, 21 IN 28 D, PO
     Route: 048
     Dates: start: 20130304
  2. GLIMEPIRIDE [Concomitant]
  3. CLONIDINE HCL [Concomitant]
  4. JANUVIA (SITAGLIPTIN PHOSPHATE) [Concomitant]
  5. JANUVIA (SITAGLIPTIN PHOSPHATE) [Concomitant]
  6. ZOCOR (SIMVASTATIN) [Concomitant]
  7. ASPIRIN W/ BUTALBITAL/CAFFEINE [Concomitant]
  8. ALLOPURINOL [Concomitant]
  9. FLOMAX (TAMSULOSIN HYDROCHLORIDE) [Concomitant]
  10. HYDRALAZINE HCL [Concomitant]
  11. GABAPENTIN [Concomitant]
  12. NEURONTIN (GABAPENTIN) [Concomitant]
  13. NORVASC (AMLODIPINE BESILATE) [Concomitant]
  14. DEXAMETHASONE [Concomitant]
  15. VALTREX (VALACICLOVIR HYDROCHLORIDE) [Concomitant]
  16. ACIPHEX (RABEPRAZOLE SODIUM) (ENTERIC-COATED TABLET) [Concomitant]
  17. VALACYCLOVIR HCL (VALACICLOVIR HYDROCHLORIDE) [Concomitant]
  18. FENOFIBRATE [Concomitant]
  19. CENTRUM SILVER [Concomitant]
  20. METOPROLOL TARTRATE [Concomitant]
  21. ISOSORBIDE DNITIRATE [Concomitant]
  22. NITROGLYCERIN (GLYXERYL TRINITRATE) [Concomitant]
  23. NEXIUM (ESOMEPRAZOLE) [Concomitant]
  24. ASA (ACETYLSALICYLIC ACID) [Concomitant]

REACTIONS (1)
  - Thrombophlebitis superficial [None]
